FAERS Safety Report 9165083 (Version 1)
Quarter: 2013Q1

REPORT INFORMATION
  Report Type: Spontaneous
  Country: GB (occurrence: None)
  Receive Date: 20130227
  Receipt Date: 20130227
  Transmission Date: 20140127
  Serious: Yes (Other)
  Sender: FDA-Public Use
  Company Number: HRA-MET20130004

PATIENT
  Sex: Female

DRUGS (1)
  1. METOPIRONE [Suspect]
     Indication: PRODUCT USED FOR UNKNOWN INDICATION
     Dates: start: 20130122

REACTIONS (1)
  - Thrombocytopenia [None]
